FAERS Safety Report 9769547 (Version 1)
Quarter: 2013Q3

REPORT INFORMATION
  Report Type: Spontaneous
  Country: US (occurrence: None)
  Receive Date: 20130910
  Receipt Date: 20130910
  Transmission Date: 20140515
  Serious: Yes (Hospitalization)
  Sender: FDA-Public Use
  Company Number: VAL_01920_2013

PATIENT
  Age: 63 Year
  Sex: Male
  Weight: 109.3 kg

DRUGS (7)
  1. METOPROLOL [Suspect]
     Indication: HYPERTENSION
     Route: 048
     Dates: start: 20120228, end: 201203
  2. ALISKIREN [Suspect]
     Indication: CARDIOVASCULAR DISORDER
     Dosage: (DF [CODE BROKEN DUE TO END OF STUDY] ORAL)
     Route: 048
     Dates: start: 20080925, end: 20100509
  3. LISINOPRIL [Suspect]
     Indication: HYPERTENSION
     Route: 048
     Dates: start: 20120322, end: 20120404
  4. FLUOXETINE [Concomitant]
  5. HUMALOG [Concomitant]
  6. INSULIN GLARGINE [Concomitant]
  7. TRAZODONE [Concomitant]

REACTIONS (4)
  - Hypotension [None]
  - Asthenia [None]
  - Dehydration [None]
  - Treatment noncompliance [None]
